FAERS Safety Report 9924920 (Version 2)
Quarter: 2014Q2

REPORT INFORMATION
  Report Type: Spontaneous
  Country: BR (occurrence: BR)
  Receive Date: 20140226
  Receipt Date: 20140402
  Transmission Date: 20141212
  Serious: Yes (Other)
  Sender: FDA-Public Use
  Company Number: BR-SA-2014SA020047

PATIENT
  Age: 46 Year
  Sex: Female

DRUGS (2)
  1. ALLEGRA [Suspect]
     Indication: RHINITIS
     Route: 048
     Dates: start: 20140213
  2. MONTELUKAST SODIUM [Concomitant]
     Route: 048

REACTIONS (9)
  - Throat tightness [Recovered/Resolved]
  - Blood pressure increased [Recovered/Resolved]
  - Pharyngeal oedema [Recovered/Resolved]
  - Burning sensation [Recovered/Resolved]
  - Vertigo [Recovered/Resolved]
  - Cough [Recovered/Resolved]
  - Mucosal hyperaemia [Recovered/Resolved]
  - Pruritus [Recovered/Resolved]
  - Headache [Recovered/Resolved]
